FAERS Safety Report 9574935 (Version 3)
Quarter: 2013Q4

REPORT INFORMATION
  Report Type: Report from Study
  Country: US (occurrence: US)
  Receive Date: 20131001
  Receipt Date: 20131009
  Transmission Date: 20140711
  Serious: Yes (Hospitalization, Other)
  Sender: FDA-Public Use
  Company Number: US-ROCHE-1262828

PATIENT
  Age: 52 Year
  Sex: Female
  Weight: 62.2 kg

DRUGS (18)
  1. TRASTUZUMAB [Suspect]
     Indication: HER-2 POSITIVE BREAST CANCER
     Dosage: LOADING DOSE: 8 MG/KG
     Route: 042
     Dates: start: 20130612
  2. TRASTUZUMAB [Suspect]
     Dosage: MAINTENENCE DOSE?DATE OF LAST DOSE PRIOR TO SAE ONSET: 24/JUL/2013
     Route: 042
  3. PACLITAXEL [Suspect]
     Indication: HER-2 POSITIVE BREAST CANCER
     Dosage: DATE OF MOST RECENT DOSE PRIOR TO SAE ONSET: 07/AUG/2013
     Route: 042
     Dates: start: 20130612
  4. PACLITAXEL [Suspect]
     Route: 042
     Dates: start: 20130814
  5. NEUPOGEN [Concomitant]
     Route: 065
     Dates: start: 20130730
  6. PRILOSEC [Concomitant]
     Route: 065
     Dates: start: 20100202
  7. FLONASE [Concomitant]
     Route: 065
     Dates: start: 20100202
  8. LORAZEPAM [Concomitant]
     Route: 065
     Dates: start: 20130412
  9. CALCIUM D3 [Concomitant]
     Route: 065
     Dates: start: 20130328
  10. DECADRON [Concomitant]
     Route: 065
     Dates: start: 20130613
  11. BENADRYL (UNITED STATES) [Concomitant]
     Route: 065
     Dates: start: 20130612
  12. ZOFRAN [Concomitant]
     Route: 065
     Dates: start: 20130710
  13. ZANTAC [Concomitant]
     Route: 065
     Dates: start: 20130612
  14. IBUPROFEN [Concomitant]
     Route: 065
     Dates: start: 20070912
  15. IMODIUM [Concomitant]
     Route: 065
     Dates: start: 20130810
  16. IMODIUM [Concomitant]
     Route: 065
     Dates: start: 20130701
  17. PERTUZUMAB [Suspect]
     Indication: HER-2 POSITIVE BREAST CANCER
     Dosage: LOADING DOSE:
     Route: 042
     Dates: start: 20130612
  18. PERTUZUMAB [Suspect]
     Dosage: MAINTENENCE DOSE?DATE OF LAST DOSE PRIOR TO FIRST EPISODE OF ATRIAL FIBRILLATION: 24/JUL/2013?DATE O
     Route: 042

REACTIONS (1)
  - Atrial fibrillation [Recovered/Resolved]
